FAERS Safety Report 7244301-0 (Version None)
Quarter: 2011Q1

REPORT INFORMATION
  Report Type: 
  Country: None (occurrence: None)
  Receive Date: 20110125
  Receipt Date: 20110114
  Transmission Date: 20110831
  Serious: Yes (Hospitalization)
  Sender: FDA-Public Use
  Company Number: IE-BAXTER-2011BH001285

PATIENT
  Sex: Female

DRUGS (2)
  1. DIANEAL [Suspect]
     Indication: PERITONEAL DIALYSIS
     Route: 042
  2. DIANEAL [Suspect]
     Route: 042

REACTIONS (4)
  - ABDOMINAL DISTENSION [None]
  - FLUID OVERLOAD [None]
  - DYSPNOEA [None]
  - PROCEDURAL COMPLICATION [None]
